FAERS Safety Report 5069132-1 (Version None)
Quarter: 2006Q3

REPORT INFORMATION
  Report Type: 
  Country: None (occurrence: None)
  Receive Date: 20060731
  Receipt Date: 20060714
  Transmission Date: 20061208
  Serious: Yes (Other)
  Sender: FDA-Public Use
  Company Number: 2006088147

PATIENT
  Age: 35 Year
  Sex: Female
  Weight: 83.9154 kg

DRUGS (5)
  1. DETROL LA [Suspect]
     Indication: POLLAKIURIA
     Dosage: 4 MG (4 MG, 1 IN 1 D)
     Dates: start: 20060712
  2. ACCUTANE [Concomitant]
  3. WELLBUTRIN [Concomitant]
  4. CONCERTA [Concomitant]
  5. ALDACTONE [Concomitant]

REACTIONS (3)
  - ABNORMAL SENSATION IN EYE [None]
  - VISION BLURRED [None]
  - VISUAL DISTURBANCE [None]
